FAERS Safety Report 18618159 (Version 1)
Quarter: 2020Q4

REPORT INFORMATION
  Report Type: Spontaneous
  Country: CZ (occurrence: CZ)
  Receive Date: 20201215
  Receipt Date: 20201215
  Transmission Date: 20210114
  Serious: Yes (Other)
  Sender: FDA-Public Use
  Company Number: CZ-009507513-2012CZE003897

PATIENT
  Age: 45 Year
  Sex: Male

DRUGS (2)
  1. EZETIMIBE. [Suspect]
     Active Substance: EZETIMIBE
     Indication: TYPE IIA HYPERLIPIDAEMIA
     Dosage: UNK
     Route: 065
  2. ROSUVASTATIN. [Suspect]
     Active Substance: ROSUVASTATIN
     Indication: TYPE IIA HYPERLIPIDAEMIA
     Dosage: UNK
     Route: 065

REACTIONS (2)
  - Therapeutic product effect incomplete [Unknown]
  - Acute myocardial infarction [Unknown]

NARRATIVE: CASE EVENT DATE: 2020
